FAERS Safety Report 12722605 (Version 11)
Quarter: 2020Q4

REPORT INFORMATION
  Report Type: Spontaneous
  Country: US (occurrence: US)
  Receive Date: 20160907
  Receipt Date: 20201014
  Transmission Date: 20210113
  Serious: Yes (Congenital Anomaly, Other)
  Sender: FDA-Public Use
  Company Number: PHEH2016US022294

PATIENT
  Sex: Female

DRUGS (1)
  1. ONDANSETRON HYDROCHLORIDE. [Suspect]
     Active Substance: ONDANSETRON HYDROCHLORIDE
     Indication: FOETAL EXPOSURE DURING PREGNANCY
     Dosage: MOTHER DOSE: 04 MG, Q4H
     Route: 064

REACTIONS (22)
  - Ventricular septal defect [Unknown]
  - Tricuspid valve incompetence [Unknown]
  - Dacryostenosis congenital [Unknown]
  - Foetal exposure during pregnancy [Unknown]
  - Protein S deficiency [Unknown]
  - Heart disease congenital [Unknown]
  - Premature baby [Unknown]
  - Neonatal respiratory distress syndrome [Unknown]
  - Jaundice neonatal [Unknown]
  - Neonatal respiratory depression [Unknown]
  - Pain [Unknown]
  - Injury [Unknown]
  - Upper respiratory tract infection [Unknown]
  - Anxiety [Unknown]
  - Congenital abdominal hernia [Unknown]
  - Sepsis neonatal [Unknown]
  - Cyst [Unknown]
  - Retinopathy congenital [Unknown]
  - Neonatal hypotension [Unknown]
  - Anaemia neonatal [Unknown]
  - Infantile apnoea [Unknown]
  - Anhedonia [Unknown]
